FAERS Safety Report 8153163-9 (Version None)
Quarter: 2012Q1

REPORT INFORMATION
  Report Type: 
  Country: None (occurrence: None)
  Receive Date: 20120221
  Receipt Date: 20120221
  Transmission Date: 20120608
  Serious: Yes (Other)
  Sender: FDA-Public Use
  Company Number: CA-JNJFOC-20090304480

PATIENT
  Sex: Female
  Weight: 71 kg

DRUGS (2)
  1. ATENOLOL [Concomitant]
     Route: 065
  2. REMICADE [Suspect]
     Indication: CROHN'S DISEASE
     Route: 042
     Dates: start: 20071201, end: 20111201

REACTIONS (3)
  - BREAST CANCER [None]
  - DRUG SPECIFIC ANTIBODY PRESENT [None]
  - DRUG INEFFECTIVE [None]
